FAERS Safety Report 5290170-8 (Version None)
Quarter: 2007Q2

REPORT INFORMATION
  Report Type: 
  Country: None (occurrence: None)
  Receive Date: 20070402
  Receipt Date: 20070322
  Transmission Date: 20071010
  Serious: Yes (Hospitalization)
  Sender: FDA-Public Use
  Company Number: 238726

PATIENT
  Age: 69 Year
  Sex: Male
  Weight: 131.5 kg

DRUGS (3)
  1. RAPTIVA [Suspect]
     Indication: PSORIASIS
     Dosage: UNK, 1/WEEK, SUBCUTANEOUS
     Route: 058
     Dates: start: 20060401, end: 20060901
  2. DILTIAZEM HCL [Concomitant]
  3. SIMVASTATIN [Concomitant]

REACTIONS (2)
  - BLOOD GLUCOSE INCREASED [None]
  - VOMITING [None]
